FAERS Safety Report 13520115 (Version 1)
Quarter: 2017Q2

REPORT INFORMATION
  Report Type: Spontaneous
  Country: US (occurrence: US)
  Receive Date: 20170506
  Receipt Date: 20170506
  Transmission Date: 20170830
  Serious: No
  Sender: FDA-Public Use
  Company Number: US-MISSION PHARMACAL COMPANY-2020337

PATIENT
  Age: 45 Year
  Sex: Female

DRUGS (1)
  1. THIOLA [Suspect]
     Active Substance: TIOPRONIN
     Indication: RENAL TUBULAR DYSFUNCTION
     Route: 065
     Dates: start: 20140921

REACTIONS (1)
  - Incontinence [Unknown]
